FAERS Safety Report 22061116 (Version 2)
Quarter: 2023Q1

REPORT INFORMATION
  Report Type: Report from Study
  Country: DE (occurrence: DE)
  Receive Date: 20230303
  Receipt Date: 20230310
  Transmission Date: 20230418
  Serious: Yes (Other)
  Sender: FDA-Public Use
  Company Number: DE-LEO Pharma-349674

PATIENT
  Age: 30 Year
  Sex: Female
  Weight: 88 kg

DRUGS (1)
  1. BRODALUMAB [Suspect]
     Active Substance: BRODALUMAB
     Indication: Psoriasis
     Route: 058
     Dates: start: 20201203, end: 20210715

REACTIONS (1)
  - Maternal exposure during pregnancy [Not Recovered/Not Resolved]

NARRATIVE: CASE EVENT DATE: 20210625
